FAERS Safety Report 10146659 (Version 1)
Quarter: 2014Q2

REPORT INFORMATION
  Report Type: Spontaneous
  Country: US (occurrence: None)
  Receive Date: 20140430
  Receipt Date: 20140430
  Transmission Date: 20141212
  Serious: Yes (Hospitalization)
  Sender: FDA-Public Use
  Company Number: None

PATIENT
  Age: 49 Year
  Sex: Female

DRUGS (11)
  1. WARFARIN [Suspect]
     Indication: DEEP VEIN THROMBOSIS
     Route: 048
     Dates: start: 20131201, end: 20140124
  2. ASCORBIC ACID [Concomitant]
  3. DIFENOXIN/ATROPINE [Concomitant]
  4. DIPHENOXYLATE/ATROPINE [Concomitant]
  5. HYDROMORPHONE [Concomitant]
  6. LEVOTHYROXINE [Concomitant]
  7. MESALAMINE [Concomitant]
  8. MULTIVITAMIN [Concomitant]
  9. ONDANSETRON [Concomitant]
  10. PREDNISONE [Concomitant]
  11. ZINC SULFATE [Concomitant]

REACTIONS (4)
  - Haemoglobin decreased [None]
  - Occult blood positive [None]
  - International normalised ratio increased [None]
  - Sepsis [None]
